FAERS Safety Report 6578818-9 (Version None)
Quarter: 2010Q1

REPORT INFORMATION
  Report Type: 
  Country: None (occurrence: None)
  Receive Date: 20100202
  Receipt Date: 20100118
  Transmission Date: 20100710
  Serious: Yes (Death)
  Sender: FDA-Public Use
  Company Number: 2010S1000091

PATIENT
  Age: 51 Year
  Sex: Female

DRUGS (11)
  1. OXYBUTYNIN CHLORIDE EXTENDED-RELEASE TABLETS USP  5MG, 10MG, AND 15MG [Suspect]
     Dates: end: 20080101
  2. DOXEPIN HCL [Suspect]
     Dates: end: 20080101
  3. ETHANOL [Suspect]
     Dates: end: 20080101
  4. CLONAZEPAM [Suspect]
     Dates: end: 20080101
  5. CLONIDINE [Suspect]
     Dates: end: 20080101
  6. UNKNOWN DRUG [Suspect]
     Dates: end: 20080101
  7. DIPHENHYDRAMINE [Suspect]
     Dates: end: 20080101
  8. SILDENAFIL CITRATE [Suspect]
     Dates: end: 20080101
  9. SERTRALINE HCL [Suspect]
     Dates: end: 20080101
  10. DULOXETINE [Suspect]
     Dates: end: 20080101
  11. ESCITALOPRAM [Suspect]
     Dates: end: 20080101

REACTIONS (2)
  - CARDIAC ARREST [None]
  - RESPIRATORY ARREST [None]
